FAERS Safety Report 6993850-9 (Version None)
Quarter: 2010Q3

REPORT INFORMATION
  Report Type: 
  Country: None (occurrence: None)
  Receive Date: 20100917
  Receipt Date: 20070611
  Transmission Date: 20110219
  Serious: Yes (Hospitalization, Other)
  Sender: FDA-Public Use
  Company Number: US-ASTRAZENECA-2006UW24112

PATIENT
  Sex: Male
  Weight: 93.4 kg

DRUGS (11)
  1. SEROQUEL [Suspect]
     Dosage: 200-400 MG
     Route: 048
     Dates: start: 20020605
  2. ZYPREXA [Suspect]
     Dates: start: 20040101
  3. ZYPREXA [Suspect]
     Dosage: 2DF ,AT NIGHT
     Route: 048
     Dates: start: 20040901
  4. ZYPREXA [Suspect]
     Dosage: 5-15 MG
     Dates: start: 20040101, end: 20040203
  5. RISPERDAL [Concomitant]
     Route: 048
     Dates: start: 20051101
  6. ZOLOFT [Concomitant]
     Dosage: 50-200 MG
     Dates: start: 20020916
  7. PHENTERMINE [Concomitant]
     Dosage: 37.5 MG 1 IN THE A.M
     Dates: start: 20040113
  8. ELAVIL [Concomitant]
     Dosage: 50-200 MG
     Dates: start: 20020916
  9. CARAFATE [Concomitant]
     Dates: start: 20020916
  10. RANITIDINE [Concomitant]
     Dates: start: 20031228
  11. HALDOL [Concomitant]
     Dosage: 100 MG Q 4 WKS
     Route: 030
     Dates: start: 19950504

REACTIONS (5)
  - DIABETES MELLITUS [None]
  - DIABETES MELLITUS INADEQUATE CONTROL [None]
  - DIABETIC COMA [None]
  - DIABETIC KETOACIDOSIS [None]
  - PANCREATITIS [None]
